FAERS Safety Report 12784408 (Version 1)
Quarter: 2016Q3

REPORT INFORMATION
  Report Type: Not Available
  Country: DE (occurrence: DE)
  Receive Date: 20160927
  Receipt Date: 20160927
  Transmission Date: 20161109
  Serious: Yes (Other)
  Sender: FDA-Public Use
  Company Number: DE-BEH-2013039305

PATIENT
  Age: 61 Year
  Sex: Male

DRUGS (5)
  1. ERYTHROCYTE CONCENTRATE [Concomitant]
     Active Substance: HUMAN RED BLOOD CELL
     Dosage: INFUSION
  2. PRIVIGEN [Suspect]
     Active Substance: HUMAN IMMUNOGLOBULIN G
     Indication: SEPSIS
     Route: 042
     Dates: start: 20131110, end: 20131110
  3. PRIVIGEN [Suspect]
     Active Substance: HUMAN IMMUNOGLOBULIN G
     Dates: start: 20131110, end: 20131110
  4. PRIVIGEN [Suspect]
     Active Substance: HUMAN IMMUNOGLOBULIN G
     Dates: start: 20131110, end: 20131110
  5. PRIVIGEN [Suspect]
     Active Substance: HUMAN IMMUNOGLOBULIN G
     Dates: start: 20131110, end: 20131110

REACTIONS (4)
  - Anti A antibody positive [Unknown]
  - Blood bilirubin increased [Unknown]
  - Condition aggravated [Unknown]
  - Haemolysis [Recovered/Resolved]

NARRATIVE: CASE EVENT DATE: 20131112
